FAERS Safety Report 5106758-0 (Version None)
Quarter: 2006Q3

REPORT INFORMATION
  Report Type: 
  Country: None (occurrence: None)
  Receive Date: 20060918
  Receipt Date: 20060908
  Transmission Date: 20061208
  Serious: No
  Sender: FDA-Public Use
  Company Number: JP-MERCK-0609USA02188B1

PATIENT
  Sex: Female

DRUGS (3)
  1. ALDOMET-M [Suspect]
     Indication: PRE-ECLAMPSIA
  2. NIFEDIPINE [Concomitant]
     Indication: HYPERTENSION
  3. HEPARIN [Concomitant]
     Indication: THROMBOSIS

REACTIONS (1)
  - ISCHAEMIA [None]
